FAERS Safety Report 6583460-X (Version None)
Quarter: 2010Q1

REPORT INFORMATION
  Report Type: 
  Country: None (occurrence: None)
  Receive Date: 20100216
  Receipt Date: 20100202
  Transmission Date: 20100710
  Serious: Yes (Hospitalization, Other)
  Sender: FDA-Public Use
  Company Number: US-BAYER-201012969NA

PATIENT
  Age: 68 Year
  Sex: Male

DRUGS (4)
  1. LEVITRA [Suspect]
     Indication: ERECTILE DYSFUNCTION
     Route: 065
     Dates: start: 20050101
  2. UNKNOWN DRUG [Concomitant]
     Indication: BLOOD PRESSURE ABNORMAL
     Route: 065
  3. UNKNOWN DRUG [Concomitant]
     Indication: BLOOD CHOLESTEROL ABNORMAL
     Route: 065
  4. CIALIS [Concomitant]
     Indication: ERECTILE DYSFUNCTION

REACTIONS (3)
  - AMNESIA [None]
  - APHASIA [None]
  - TRANSIENT GLOBAL AMNESIA [None]
